FAERS Safety Report 5939424-X (Version None)
Quarter: 2008Q4

REPORT INFORMATION
  Report Type: 
  Country: None (occurrence: None)
  Receive Date: 20081029
  Receipt Date: 20081022
  Transmission Date: 20090506
  Serious: Yes (Hospitalization, Other)
  Sender: FDA-Public Use
  Company Number: 014021

PATIENT
  Age: 51 Year
  Sex: Male

DRUGS (3)
  1. GLYCERYL TRINITRATE(GLYCERYL TRINITRATE) [Suspect]
     Indication: ARTERIOSPASM CORONARY
     Dosage: INTRACORONARY, INTRAVENOUS
  2. VERAPAMIL HCL [Suspect]
     Indication: ARTERIOSPASM CORONARY
     Dosage: INTRACORONARY
     Route: 022
  3. DILTIAZEM [Suspect]
     Indication: ARTERIOSPASM CORONARY
     Dosage: INTRAVENOUS, ORAL

REACTIONS (2)
  - DRUG INEFFECTIVE [None]
  - MYOCARDIAL INFARCTION [None]
